FAERS Safety Report 24205330 (Version 1)
Quarter: 2024Q3

REPORT INFORMATION
  Report Type: Spontaneous
  Country: US (occurrence: US)
  Receive Date: 20240813
  Receipt Date: 20240813
  Transmission Date: 20241017
  Serious: No
  Sender: BRISTOL MYERS SQUIBB
  Company Number: US-BRISTOL-MYERS SQUIBB COMPANY-2024-128030

PATIENT
  Age: 64 Year
  Sex: Male
  Weight: 82.55 kg

DRUGS (1)
  1. REVLIMID [Suspect]
     Active Substance: LENALIDOMIDE
     Indication: Product used for unknown indication

REACTIONS (10)
  - Fatigue [Unknown]
  - Pain [Unknown]
  - Rash [Unknown]
  - Pruritus [Unknown]
  - Restless legs syndrome [Unknown]
  - Diarrhoea [Unknown]
  - Oedema [Unknown]
  - Musculoskeletal chest pain [Unknown]
  - Skin irritation [Unknown]
  - Joint swelling [Unknown]
